FAERS Safety Report 16725430 (Version 1)
Quarter: 2019Q4

REPORT INFORMATION
  Report Type: Spontaneous
  Country: US (occurrence: US)
  Receive Date: 20190820
  Receipt Date: 20190820
  Transmission Date: 20200122
  Serious: Yes (Hospitalization)
  Sender: FDA-Public Use
  Company Number: None

PATIENT
  Age: 22 Year
  Sex: Female

DRUGS (2)
  1. LORBRENA [Suspect]
     Active Substance: LORLATINIB
     Route: 048
     Dates: start: 20190411
  2. LEUKINE [Suspect]
     Active Substance: SARGRAMOSTIM
     Route: 058
     Dates: start: 20190816

REACTIONS (1)
  - Hospitalisation [None]
